FAERS Safety Report 8508336-X (Version None)
Quarter: 2012Q3

REPORT INFORMATION
  Report Type: 
  Country: None (occurrence: None)
  Receive Date: 20120713
  Receipt Date: 20120704
  Transmission Date: 20120928
  Serious: Yes (Hospitalization)
  Sender: FDA-Public Use
  Company Number: CA-JNJFOC-20120702518

PATIENT
  Sex: Male
  Weight: 136 kg

DRUGS (4)
  1. REMICADE [Suspect]
     Indication: CROHN'S DISEASE
     Route: 042
  2. BENADRYL [Concomitant]
     Indication: PREMEDICATION
     Route: 042
  3. REMICADE [Suspect]
     Route: 042
     Dates: start: 20120704, end: 20120704
  4. SOLU-CORTEF [Concomitant]
     Indication: PREMEDICATION
     Route: 042
     Dates: start: 20120704

REACTIONS (6)
  - PAIN [None]
  - ANXIETY [None]
  - STRESS [None]
  - JOINT STIFFNESS [None]
  - INFUSION RELATED REACTION [None]
  - FEELING JITTERY [None]
